FAERS Safety Report 4943372-1 (Version None)
Quarter: 2006Q1

REPORT INFORMATION
  Report Type: 
  Country: None (occurrence: None)
  Receive Date: 20060314
  Receipt Date: 20051117
  Transmission Date: 20060701
  Serious: Yes (Other)
  Sender: FDA-Public Use
  Company Number: JP-AVENTIS-200610755JP

PATIENT
  Age: 51 Year
  Sex: Female
  Weight: 53 kg

DRUGS (4)
  1. ARAVA [Suspect]
     Indication: RHEUMATOID ARTHRITIS
     Route: 048
     Dates: start: 20050824, end: 20051116
  2. QUESTRAN [Suspect]
     Indication: DRUG DETOXIFICATION
     Route: 048
     Dates: start: 20051117, end: 20051130
  3. QUESTRAN [Suspect]
     Route: 048
     Dates: start: 20051229, end: 20060111
  4. ETODOLAC [Concomitant]
     Route: 048

REACTIONS (5)
  - ALANINE AMINOTRANSFERASE INCREASED [None]
  - ASPARTATE AMINOTRANSFERASE INCREASED [None]
  - BLOOD ALKALINE PHOSPHATASE INCREASED [None]
  - DIARRHOEA [None]
  - HEPATIC FUNCTION ABNORMAL [None]
